FAERS Safety Report 11245548 (Version 2)
Quarter: 2015Q3

REPORT INFORMATION
  Report Type: Spontaneous
  Country: US (occurrence: US)
  Receive Date: 20150707
  Receipt Date: 20150914
  Transmission Date: 20151125
  Serious: No
  Sender: FDA-Public Use
  Company Number: US-PFIZER INC-2015218331

PATIENT
  Age: 70 Year
  Sex: Female
  Weight: 79 kg

DRUGS (3)
  1. PREMARIN [Suspect]
     Active Substance: ESTROGENS, CONJUGATED
     Indication: VULVOVAGINAL PRURITUS
     Dosage: 0.5 TO 2 GRAMS, WEEKLY (ONCE A WEEK)
     Route: 067
     Dates: start: 2007
  2. PREMARIN [Suspect]
     Active Substance: ESTROGENS, CONJUGATED
     Dosage: 1 G, WEEKLY
     Route: 067
     Dates: start: 2009
  3. FLUOCINONIDE. [Concomitant]
     Active Substance: FLUOCINONIDE
     Dosage: UNK (0.05%) (ONE ON MONDAY AND FRIDAY NIGHTS)
     Dates: start: 2010

REACTIONS (2)
  - Product quality issue [Not Recovered/Not Resolved]
  - Intentional product misuse [Not Recovered/Not Resolved]
